FAERS Safety Report 4863748-0 (Version None)
Quarter: 2005Q4

REPORT INFORMATION
  Report Type: 
  Country: None (occurrence: None)
  Receive Date: 20051222
  Receipt Date: 20050211
  Transmission Date: 20060501
  Serious: No
  Sender: FDA-Public Use
  Company Number: US-GLAXOSMITHKLINE-A0545157A

PATIENT
  Age: 10 Year
  Sex: Male

DRUGS (4)
  1. FLOVENT [Suspect]
     Indication: ASTHMA
     Dosage: 1PUFF PER DAY
     Route: 055
  2. ALBUTEROL [Concomitant]
  3. ZYRTEC [Concomitant]
  4. SINGULAIR [Concomitant]

REACTIONS (1)
  - PHARYNX DISCOMFORT [None]
